FAERS Safety Report 11494460 (Version 1)
Quarter: 2015Q3

REPORT INFORMATION
  Report Type: Spontaneous
  Country: US (occurrence: US)
  Receive Date: 20150911
  Receipt Date: 20150911
  Transmission Date: 20151125
  Serious: No
  Sender: FDA-Public Use
  Company Number: US-ROCHE-1018962

PATIENT
  Sex: Male

DRUGS (4)
  1. RIBAVIRIN. [Suspect]
     Active Substance: RIBAVIRIN
     Route: 065
     Dates: start: 20111003
  2. PEGASYS [Suspect]
     Active Substance: PEGINTERFERON ALFA-2A
     Indication: CHRONIC HEPATITIS C
     Route: 058
     Dates: start: 20110904
  3. RIBAVIRIN. [Suspect]
     Active Substance: RIBAVIRIN
     Indication: CHRONIC HEPATITIS C
     Dosage: DIVIDED DOSE
     Route: 048
     Dates: start: 20110904
  4. TELAPREVIR [Suspect]
     Active Substance: TELAPREVIR
     Indication: CHRONIC HEPATITIS C
     Route: 065
     Dates: start: 20110904, end: 20111126

REACTIONS (11)
  - Productive cough [Unknown]
  - Fatigue [Unknown]
  - Weight decreased [Unknown]
  - Anaemia [Unknown]
  - Pruritus [Recovering/Resolving]
  - Faeces pale [Unknown]
  - Contusion [Unknown]
  - Proctalgia [Unknown]
  - Haemoglobin [Recovering/Resolving]
  - Dyspnoea [Unknown]
  - High density lipoprotein decreased [Unknown]
